FAERS Safety Report 22662013 (Version 1)
Quarter: 2023Q2

REPORT INFORMATION
  Report Type: Spontaneous
  Country: US (occurrence: US)
  Receive Date: 20230630
  Receipt Date: 20230630
  Transmission Date: 20230721
  Serious: Yes (Disabling, Other)
  Sender: FDA-Public Use
  Company Number: US-HORIZON THERAPEUTICS-HZN-2023-004889

PATIENT

DRUGS (2)
  1. TEPEZZA [Suspect]
     Active Substance: TEPROTUMUMAB-TRBW
     Indication: Endocrine ophthalmopathy
     Dosage: 1ST INFUSION
     Route: 042
     Dates: start: 202106
  2. TEPEZZA [Suspect]
     Active Substance: TEPROTUMUMAB-TRBW
     Indication: Graves^ disease
     Dosage: LAST INFUSION
     Route: 042
     Dates: start: 202111, end: 202111

REACTIONS (14)
  - Deafness permanent [Unknown]
  - Physical disability [Unknown]
  - Disability [Unknown]
  - Anxiety [Unknown]
  - Impaired quality of life [Unknown]
  - Concomitant disease aggravated [Unknown]
  - Pain [Unknown]
  - Discomfort [Unknown]
  - Emotional distress [Unknown]
  - Injury [Unknown]
  - Auditory disorder [Unknown]
  - Tinnitus [Unknown]
  - Economic problem [Unknown]
  - Product quality issue [Unknown]
